FAERS Safety Report 13194213 (Version 6)
Quarter: 2018Q3

REPORT INFORMATION
  Report Type: Spontaneous
  Country: US (occurrence: US)
  Receive Date: 20170207
  Receipt Date: 20180711
  Transmission Date: 20181010
  Serious: Yes (Hospitalization, Other)
  Sender: FDA-Public Use
  Company Number: US-SAOL THERAPEUTICS-2017SAO00218

PATIENT
  Age: 15 Year
  Sex: Male
  Weight: 39 kg

DRUGS (7)
  1. LIORESAL [Suspect]
     Active Substance: BACLOFEN
     Dosage: 410 ?G, \DAY
     Route: 037
     Dates: end: 20171006
  2. LIORESAL [Suspect]
     Active Substance: BACLOFEN
     Dosage: 332 ?G, \DAY
     Route: 037
  3. LIORESAL [Suspect]
     Active Substance: BACLOFEN
     Dosage: 1000 ?G, \DAY
     Route: 037
  4. LIORESAL [Suspect]
     Active Substance: BACLOFEN
     Dosage: 525.5 ?G, \DAY
  5. LIORESAL [Suspect]
     Active Substance: BACLOFEN
     Dosage: 310 ?G, \DAY
     Route: 037
     Dates: start: 20171006
  6. LIORESAL [Suspect]
     Active Substance: BACLOFEN
     Indication: MUSCLE SPASTICITY
     Dosage: 322 ?G, \DAY
     Route: 037
  7. LIORESAL [Suspect]
     Active Substance: BACLOFEN
     Dosage: 270 ?G, \DAY
     Route: 037

REACTIONS (13)
  - Muscle spasticity [Recovered/Resolved]
  - Abnormal behaviour [Recovered/Resolved]
  - Therapeutic response decreased [Recovered/Resolved]
  - Device occlusion [Recovered/Resolved]
  - Decreased appetite [Recovered/Resolved]
  - Drug withdrawal syndrome [Recovered/Resolved]
  - Pulse abnormal [Recovered/Resolved]
  - Drug withdrawal syndrome [Recovered/Resolved]
  - Tremor [Recovered/Resolved]
  - Dystonia [Recovered/Resolved]
  - Excessive granulation tissue [Recovered/Resolved]
  - Chills [Recovered/Resolved]
  - Opisthotonus [Recovered/Resolved]

NARRATIVE: CASE EVENT DATE: 20171005
